FAERS Safety Report 8787858 (Version 1)
Quarter: 2012Q4

REPORT INFORMATION
  Report Type: Report from Study
  Country: US (occurrence: US)
  Receive Date: 20120914
  Receipt Date: 20120914
  Transmission Date: 20130627
  Serious: No
  Sender: FDA-Public Use
  Company Number: US-VERTEX PHARMACEUTICAL INC.-AE-2012-005370

PATIENT
  Age: 52 Year
  Sex: Male
  Weight: 78.64 kg

DRUGS (11)
  1. INCIVEK [Suspect]
     Indication: HEPATITIS C
     Route: 048
     Dates: start: 20120406
  2. PEGASYS [Concomitant]
     Indication: HEPATITIS C
     Route: 058
     Dates: start: 20120406
  3. RIBAVIRIN [Concomitant]
     Indication: HEPATITIS C
     Dates: start: 20120406
  4. FIBERCHOICE [Concomitant]
  5. HYDROCORTISONE CREAM [Concomitant]
  6. PREDNISOLONE [Concomitant]
  7. SERTRALINE [Concomitant]
  8. ZOLPIDEM [Concomitant]
  9. ONDANSETRON [Concomitant]
  10. TRIAMCINOLONE [Concomitant]
  11. HYDROXYZ HCL [Concomitant]

REACTIONS (6)
  - Headache [Unknown]
  - Influenza like illness [Unknown]
  - Weight decreased [Unknown]
  - Anorectal discomfort [Unknown]
  - Nausea [Unknown]
  - Rash [Unknown]
